FAERS Safety Report 14804406 (Version 1)
Quarter: 2018Q2

REPORT INFORMATION
  Report Type: Spontaneous
  Country: US (occurrence: US)
  Receive Date: 20180425
  Receipt Date: 20180425
  Transmission Date: 20180711
  Serious: No
  Sender: FDA-Public Use
  Company Number: US-TEVA-2018-US-872388

PATIENT
  Sex: Male

DRUGS (4)
  1. CARBATROL [Suspect]
     Active Substance: CARBAMAZEPINE
     Dosage: 3 IN THE MORNING, 2 IN THE AFTERNOON, AND 4 AT BED TIME
     Route: 065
  2. LAMOTRIGINE. [Suspect]
     Active Substance: LAMOTRIGINE
     Dosage: 3 DOSAGE FORMS DAILY; 1 DF= 1 PILL
     Route: 065
  3. FYCOMPA [Suspect]
     Active Substance: PERAMPANEL
     Dosage: 1 DOSAGE FORMS DAILY; 1 DF= 1 PILL
     Route: 065
  4. KEPPRA [Suspect]
     Active Substance: LEVETIRACETAM
     Dosage: 8 DOSAGE FORMS DAILY; 1 DF= 1 PILL
     Route: 065

REACTIONS (1)
  - Drug effect incomplete [Unknown]
